FAERS Safety Report 19370108 (Version 2)
Quarter: 2021Q2

REPORT INFORMATION
  Report Type: Spontaneous
  Country: BR (occurrence: BR)
  Receive Date: 20210603
  Receipt Date: 20210611
  Transmission Date: 20210717
  Serious: No
  Sender: FDA-Public Use
  Company Number: BR-ALLERGAN-2118915US

PATIENT
  Sex: Female
  Weight: 4.29 kg

DRUGS (1)
  1. ATROPINA 0.5% [Suspect]
     Active Substance: ATROPINE SULFATE
     Indication: SALIVARY HYPERSECRETION
     Dosage: 1 GTT, Q6HR
     Route: 060
     Dates: start: 20210413, end: 20210414

REACTIONS (3)
  - Incorrect route of product administration [Unknown]
  - Tachycardia [Recovered/Resolved]
  - Off label use [Unknown]

NARRATIVE: CASE EVENT DATE: 20210414
